FAERS Safety Report 21929831 (Version 2)
Quarter: 2023Q2

REPORT INFORMATION
  Report Type: Spontaneous
  Country: US (occurrence: US)
  Receive Date: 20230131
  Receipt Date: 20230426
  Transmission Date: 20230721
  Serious: Yes (Other)
  Sender: FDA-Public Use
  Company Number: US-SA-SAC20230130000298

PATIENT
  Age: 40 Year
  Sex: Female

DRUGS (1)
  1. AUBAGIO [Suspect]
     Active Substance: TERIFLUNOMIDE
     Indication: Multiple sclerosis
     Dosage: 14 MG, QD
     Route: 048
     Dates: start: 20190118

REACTIONS (4)
  - Multiple sclerosis relapse [Unknown]
  - Diarrhoea [Unknown]
  - Colitis [Unknown]
  - Cystitis [Unknown]

NARRATIVE: CASE EVENT DATE: 20221201
